FAERS Safety Report 22385959 (Version 1)
Quarter: 2023Q2

REPORT INFORMATION
  Report Type: Spontaneous
  Country: CN (occurrence: CN)
  Receive Date: 20230530
  Receipt Date: 20230530
  Transmission Date: 20230722
  Serious: Yes (Life-Threatening)
  Sender: FDA-Public Use
  Company Number: CN-BAYER-2023A071251

PATIENT
  Age: 25 Year
  Sex: Male

DRUGS (2)
  1. GADOBUTROL [Suspect]
     Active Substance: GADOBUTROL
     Indication: Imaging procedure
     Dosage: 14 ML, ONCE, HIGH PRESSURE INJECTION PUMP AT 1.5ML/S
     Route: 040
     Dates: start: 20230517, end: 20230517
  2. GADOBUTROL [Suspect]
     Active Substance: GADOBUTROL
     Indication: Hypertension

REACTIONS (8)
  - Contrast media allergy [Recovering/Resolving]
  - Skin tightness [Recovering/Resolving]
  - Flushing [Recovering/Resolving]
  - Urticaria [Recovering/Resolving]
  - Pruritus [Recovering/Resolving]
  - Blood pressure increased [None]
  - Respiratory rate increased [None]
  - Heart rate increased [None]

NARRATIVE: CASE EVENT DATE: 20230517
